FAERS Safety Report 6716176-7 (Version None)
Quarter: 2010Q2

REPORT INFORMATION
  Report Type: 
  Country: None (occurrence: None)
  Receive Date: 20100507
  Receipt Date: 20100426
  Transmission Date: 20101027
  Serious: Yes (Death, Hospitalization, Other)
  Sender: FDA-Public Use
  Company Number: JP-PFIZER INC-2009314541

PATIENT
  Age: 77 Year
  Sex: Male
  Weight: 59 kg

DRUGS (7)
  1. FARMORUBICIN [Suspect]
     Indication: HEPATIC NEOPLASM MALIGNANT
     Dosage: 60 MG, 1X/DAY
     Route: 013
     Dates: start: 20070824, end: 20090331
  2. LIPIODOL ULTRA-FLUID [Concomitant]
     Dosage: UNK
     Dates: start: 20070824, end: 20090331
  3. LASIX [Concomitant]
     Dosage: UNK
     Route: 048
     Dates: start: 20070101
  4. ALDACTONE [Concomitant]
     Dosage: UNK
     Route: 048
     Dates: start: 20070101
  5. URSO 250 [Concomitant]
     Dosage: UNK
     Route: 048
     Dates: start: 20070101
  6. STRONG NEO-MINOPHAGEN C [Concomitant]
     Dosage: UNK
     Route: 042
     Dates: start: 20070101
  7. GRAN [Concomitant]
     Dosage: UNK
     Route: 058
     Dates: start: 20090309

REACTIONS (3)
  - ACUTE PROMYELOCYTIC LEUKAEMIA [None]
  - ASCITES [None]
  - NEOPLASM MALIGNANT [None]
